FAERS Safety Report 5548760-0 (Version None)
Quarter: 2007Q4

REPORT INFORMATION
  Report Type: 
  Country: None (occurrence: None)
  Receive Date: 20071211
  Receipt Date: 20070411
  Transmission Date: 20080405
  Serious: No
  Sender: FDA-Public Use
  Company Number: US-AMGEN-KDL219140

PATIENT
  Sex: Female

DRUGS (2)
  1. ENBREL [Suspect]
     Indication: PSORIATIC ARTHROPATHY
     Route: 058
     Dates: start: 20050101
  2. ENBREL [Suspect]
     Indication: PSORIASIS

REACTIONS (7)
  - BACK PAIN [None]
  - FATIGUE [None]
  - MUSCLE SPASMS [None]
  - MUSCULOSKELETAL STIFFNESS [None]
  - OSTEOPOROSIS [None]
  - PYREXIA [None]
  - RASH MACULAR [None]
